FAERS Safety Report 8187224-5 (Version None)
Quarter: 2012Q1

REPORT INFORMATION
  Report Type: 
  Country: None (occurrence: None)
  Receive Date: 20120213
  Receipt Date: 20111117
  Transmission Date: 20120608
  Serious: Yes (Hospitalization)
  Sender: FDA-Public Use
  Company Number: 20111117CINRY2456

PATIENT
  Age: 48 Year
  Sex: Male

DRUGS (3)
  1. ZOLOFT [Concomitant]
  2. CINRYZE [Suspect]
     Indication: HEREDITARY ANGIOEDEMA
     Dosage: (1000 IU, 3 IN 1 WK), INTRAVENOUS
     Route: 042
     Dates: start: 20090601
  3. CINRYZE [Suspect]
     Indication: PROPHYLAXIS
     Dosage: (1000 IU, 3 IN 1 WK), INTRAVENOUS
     Route: 042
     Dates: start: 20090601

REACTIONS (4)
  - MALAISE [None]
  - CONDITION AGGRAVATED [None]
  - INAPPROPRIATE SCHEDULE OF DRUG ADMINISTRATION [None]
  - HEREDITARY ANGIOEDEMA [None]
